FAERS Safety Report 6020276-7 (Version None)
Quarter: 2008Q4

REPORT INFORMATION
  Report Type: 
  Country: None (occurrence: None)
  Receive Date: 20081226
  Receipt Date: 20081219
  Transmission Date: 20090506
  Serious: Yes (Other)
  Sender: FDA-Public Use
  Company Number: PHHY2008GB31281

PATIENT
  Sex: Male

DRUGS (2)
  1. CLOZARIL [Suspect]
     Indication: SCHIZOPHRENIA
     Dosage: 400 MG
     Route: 048
     Dates: start: 20060510, end: 20081126
  2. VENLAFAXINE [Concomitant]
     Indication: DEPRESSION
     Dosage: 75 MG/DAY
     Route: 048

REACTIONS (4)
  - DIARRHOEA [None]
  - NEUTROPHIL COUNT DECREASED [None]
  - RECTAL HAEMORRHAGE [None]
  - WHITE BLOOD CELL COUNT DECREASED [None]
